FAERS Safety Report 20539369 (Version 1)
Quarter: 2022Q1

REPORT INFORMATION
  Report Type: Spontaneous
  Country: JP (occurrence: JP)
  Receive Date: 20220302
  Receipt Date: 20220302
  Transmission Date: 20220423
  Serious: Yes (Death)
  Sender: FDA-Public Use
  Company Number: JP-BAYER-2021-179982

PATIENT
  Age: 77 Year
  Sex: Male
  Weight: 68.3 kg

DRUGS (7)
  1. XARELTO [Suspect]
     Active Substance: RIVAROXABAN
     Indication: Atrial fibrillation
     Dosage: 15 MG, QD
     Route: 048
     Dates: start: 20130126
  2. SITAGLIPTIN [Concomitant]
     Active Substance: SITAGLIPTIN
     Indication: Type 2 diabetes mellitus
     Dosage: 50 MG, QD
     Route: 048
     Dates: start: 20111024
  3. ALLOPURINOL [Concomitant]
     Active Substance: ALLOPURINOL
     Indication: Hyperuricaemia
     Dosage: 100 MG, QD
     Route: 048
     Dates: start: 20111024
  4. RABEPRAZOLE SODIUM [Concomitant]
     Active Substance: RABEPRAZOLE SODIUM
     Indication: Gastrooesophageal reflux disease
     Dosage: 10 MG, QD
     Route: 048
     Dates: start: 20191128
  5. PRAVASTATIN SODIUM [Concomitant]
     Active Substance: PRAVASTATIN SODIUM
     Indication: Dyslipidaemia
     Dosage: 10 MG, QD
     Route: 048
     Dates: start: 20190418
  6. NIZORAL [Concomitant]
     Active Substance: KETOCONAZOLE
     Indication: Seborrhoeic dermatitis
     Dosage: UNK
     Route: 003
     Dates: start: 20201126
  7. MYSER [DIFLUPREDNATE] [Concomitant]
     Indication: Seborrhoeic dermatitis
     Dosage: UNK
     Route: 003
     Dates: start: 20201126

REACTIONS (7)
  - Cerebral haemorrhage [Fatal]
  - Cerebral ventricular rupture [Fatal]
  - Headache [Fatal]
  - Feeling abnormal [Fatal]
  - Vomiting [Fatal]
  - Altered state of consciousness [Fatal]
  - Hemiparesis [Fatal]

NARRATIVE: CASE EVENT DATE: 20210715
